FAERS Safety Report 23681461 (Version 2)
Quarter: 2024Q2

REPORT INFORMATION
  Report Type: Spontaneous
  Country: NL (occurrence: NL)
  Receive Date: 20240328
  Receipt Date: 20240602
  Transmission Date: 20240716
  Serious: Yes (Other)
  Sender: FDA-Public Use
  Company Number: NL-ALXN-202403EEA001269NL

PATIENT

DRUGS (3)
  1. KANUMA [Suspect]
     Active Substance: SEBELIPASE ALFA
     Indication: Lysosomal acid lipase deficiency
     Dosage: 4.3MG/KG, QW
     Route: 065
  2. KANUMA [Suspect]
     Active Substance: SEBELIPASE ALFA
     Dosage: 5MG/KG, QW
     Route: 065
  3. KANUMA [Suspect]
     Active Substance: SEBELIPASE ALFA
     Dosage: 5MG/KG TWICE WEEKLY
     Route: 065
     Dates: start: 202312

REACTIONS (4)
  - Lymphoma [Unknown]
  - Hepatic calcification [Unknown]
  - Cholelithiasis [Unknown]
  - Abdominal pain [Unknown]
